FAERS Safety Report 26127597 (Version 1)
Quarter: 2025Q4

REPORT INFORMATION
  Report Type: Spontaneous
  Country: CA (occurrence: CA)
  Receive Date: 20251206
  Receipt Date: 20251206
  Transmission Date: 20260119
  Serious: Yes (Hospitalization, Other)
  Sender: ACCORD
  Company Number: None

PATIENT
  Age: 84 Year
  Sex: Female
  Weight: 67 kg

DRUGS (2)
  1. APIXABAN [Suspect]
     Active Substance: APIXABAN
     Indication: Product used for unknown indication
     Dosage: 2 EVERY 1 DAYS
     Route: 065
  2. FRAGMIN [Suspect]
     Active Substance: DALTEPARIN SODIUM
     Indication: Product used for unknown indication
     Dosage: SOLUTION INTRAVENOUS, 1 EVERY 1 DAY
     Route: 058

REACTIONS (9)
  - Off label use [Recovered/Resolved]
  - Haemoglobin decreased [Recovered/Resolved]
  - Therapeutic embolisation [Recovered/Resolved]
  - Hypotension [Recovered/Resolved]
  - Abdominal wall haematoma [Recovered/Resolved]
  - Retroperitoneal haematoma [Recovered/Resolved]
  - Angiogram [Recovered/Resolved]
  - Transfusion [Recovered/Resolved]
  - Vena cava filter insertion [Recovered/Resolved]
